FAERS Safety Report 11778624 (Version 1)
Quarter: 2015Q4

REPORT INFORMATION
  Report Type: Spontaneous
  Country: US (occurrence: US)
  Receive Date: 20151125
  Receipt Date: 20151125
  Transmission Date: 20160304
  Serious: No
  Sender: FDA-Public Use
  Company Number: US-HORIZON-PEN-0224-2015

PATIENT
  Age: 52 Year
  Sex: Female

DRUGS (2)
  1. FLECTOR DIS 1.3% PATCH [Concomitant]
     Indication: LIGAMENT INJURY
  2. PENNSAID [Suspect]
     Active Substance: DICLOFENAC SODIUM
     Indication: LIGAMENT INJURY

REACTIONS (2)
  - Drug ineffective [Unknown]
  - Off label use [Unknown]
